FAERS Safety Report 9796996 (Version 2)
Quarter: 2014Q1

REPORT INFORMATION
  Report Type: Report from Study
  Country: US (occurrence: US)
  Receive Date: 20140105
  Receipt Date: 20140305
  Transmission Date: 20141002
  Serious: Yes (Hospitalization)
  Sender: FDA-Public Use
  Company Number: US-ROCHE-1328773

PATIENT
  Age: 51 Year
  Sex: Female

DRUGS (2)
  1. XELODA [Suspect]
     Indication: COLON CANCER
     Route: 048
     Dates: start: 201310, end: 201312
  2. XELODA [Suspect]
     Indication: COLON CANCER STAGE III

REACTIONS (2)
  - Colitis ulcerative [Not Recovered/Not Resolved]
  - Pneumonia [Recovered/Resolved]
